FAERS Safety Report 5818484-0 (Version None)
Quarter: 2008Q3

REPORT INFORMATION
  Report Type: 
  Country: None (occurrence: None)
  Receive Date: 20080718
  Receipt Date: 20080703
  Transmission Date: 20090109
  Serious: Yes (Death)
  Sender: FDA-Public Use
  Company Number: 08-205

PATIENT
  Age: 75 Year
  Sex: Male

DRUGS (8)
  1. FAZACLO ODT 25 MG AZUR PHARMA [Suspect]
     Dosage: 75 MG QHS PO
     Route: 048
     Dates: start: 20080221, end: 20080605
  2. HALDOL [Concomitant]
  3. ARICEPT [Concomitant]
  4. LORAZEPAM [Concomitant]
  5. NAMENDA [Concomitant]
  6. ASPIRIN [Concomitant]
  7. TYLENOL [Concomitant]
  8. CALCIUM [Concomitant]

REACTIONS (1)
  - DEATH [None]
